FAERS Safety Report 4555713-8 (Version None)
Quarter: 2005Q1

REPORT INFORMATION
  Report Type: 
  Country: None (occurrence: None)
  Receive Date: 20050112
  Receipt Date: 20040126
  Transmission Date: 20050727
  Serious: Yes (Hospitalization, Other)
  Sender: FDA-Public Use
  Company Number: 200411859BWH

PATIENT
  Age: 61 Year
  Sex: Female
  Weight: 63.5036 kg

DRUGS (6)
  1. CIPROFLOXACIN HYDROCHLORIDE [Suspect]
     Indication: CYSTITIS
     Dosage: ONCE, ORAL
     Route: 048
     Dates: start: 20031124
  2. CIPROFLOXACIN HYDROCHLORIDE [Suspect]
     Indication: SINUSITIS
     Dosage: ONCE, ORAL
     Route: 048
     Dates: start: 20031124
  3. CIPROFLOXACIN HYDROCHLORIDE [Suspect]
     Indication: CYSTITIS
     Dosage: ONCE, ORAL
     Route: 048
     Dates: start: 20040101
  4. CIPROFLOXACIN HYDROCHLORIDE [Suspect]
     Indication: SINUSITIS
     Dosage: ONCE, ORAL
     Route: 048
     Dates: start: 20040101
  5. DOXEPIN HCL [Concomitant]
  6. PREMARIN/ NEZ/ [Concomitant]

REACTIONS (10)
  - CHEST PAIN [None]
  - CYANOSIS [None]
  - FEELING HOT [None]
  - FLUSHING [None]
  - HYPERGLYCAEMIA [None]
  - HYPERSENSITIVITY [None]
  - HYPERVENTILATION [None]
  - MIGRAINE [None]
  - NEPHROLITHIASIS [None]
  - SYNCOPE [None]
